FAERS Safety Report 9951069 (Version 1)
Quarter: 2014Q1

REPORT INFORMATION
  Report Type: Spontaneous
  Country: GB (occurrence: GB)
  Receive Date: 20140304
  Receipt Date: 20140304
  Transmission Date: 20141002
  Serious: Yes (Hospitalization)
  Sender: FDA-Public Use
  Company Number: GB-PFIZER INC-2014058045

PATIENT
  Age: 63 Year
  Sex: Female
  Weight: 64.41 kg

DRUGS (4)
  1. DOXYCYCLINE MONOHYDRATE [Suspect]
     Indication: SINUSITIS
     Dosage: 100 MG, 2X/DAY
     Route: 048
     Dates: start: 20140122, end: 20140126
  2. CITALOPRAM [Concomitant]
     Dosage: 20 MG, UNK
  3. PARACETAMOL [Concomitant]
     Indication: PAIN
     Dosage: UNK
  4. PRAMIPEXOLE [Concomitant]
     Dosage: 0.089 MG, UNK

REACTIONS (4)
  - Vomiting [Recovered/Resolved]
  - Pain [Recovered/Resolved]
  - Circulatory collapse [Recovered/Resolved]
  - Hypotension [Recovered/Resolved]
